FAERS Safety Report 5052108-8 (Version None)
Quarter: 2006Q3

REPORT INFORMATION
  Report Type: 
  Country: None (occurrence: None)
  Receive Date: 20060711
  Receipt Date: 20060620
  Transmission Date: 20061208
  Serious: Yes (Other)
  Sender: FDA-Public Use
  Company Number: FR200606004449

PATIENT
  Age: 47 Year
  Sex: Male

DRUGS (4)
  1. ZYPREXA [Suspect]
     Indication: ABNORMAL BEHAVIOUR
     Dosage: 10 MG, DAILY (1/D), ORAL
     Route: 048
     Dates: start: 20060607
  2. SINTROM             /NET/(ACENOCOUMAROL) [Concomitant]
  3. CIRKAN (ASCORBIC ACID, HERBAL EXTRACTS NOS, HESPERIDIN METHYL CHALCONE [Concomitant]
  4. MAGNE-B6 (MEGNESIUM LACTATE, PYRIDOXINE HYDROCHLORIDE) [Concomitant]

REACTIONS (1)
  - PROTHROMBIN LEVEL INCREASED [None]
